FAERS Safety Report 9014382 (Version 1)
Quarter: 2013Q1

REPORT INFORMATION
  Report Type: Spontaneous
  Country: US (occurrence: US)
  Receive Date: 20130115
  Receipt Date: 20130115
  Transmission Date: 20140127
  Serious: No
  Sender: FDA-Public Use
  Company Number: US-PFIZER INC-2013016158

PATIENT
  Age: 70 Year
  Sex: Male
  Weight: 77.1 kg

DRUGS (2)
  1. LYRICA [Suspect]
     Indication: NERVE COMPRESSION
     Dosage: UNK, 2X/DAY
     Dates: start: 20121220
  2. LYRICA [Suspect]
     Indication: NEUROPATHY PERIPHERAL

REACTIONS (1)
  - Drug ineffective [Unknown]
